FAERS Safety Report 11101155 (Version 3)
Quarter: 2018Q3

REPORT INFORMATION
  Report Type: Spontaneous
  Country: US (occurrence: US)
  Receive Date: 20150508
  Receipt Date: 20180820
  Transmission Date: 20181010
  Serious: Yes (Other)
  Sender: FDA-Public Use
  Company Number: US-PFIZER INC-2015155186

PATIENT
  Age: 62 Year
  Sex: Female
  Weight: 66 kg

DRUGS (1)
  1. CELECOXIB. [Suspect]
     Active Substance: CELECOXIB
     Indication: RHEUMATOID ARTHRITIS
     Dosage: 200 MG, 2X/DAY
     Route: 048
     Dates: start: 20150407

REACTIONS (6)
  - Asthenia [Unknown]
  - Pain [Unknown]
  - Cardiac disorder [Unknown]
  - Pain in extremity [Not Recovered/Not Resolved]
  - Hypersensitivity vasculitis [Unknown]
  - Chronic pigmented purpura [Unknown]

NARRATIVE: CASE EVENT DATE: 2015
